FAERS Safety Report 23917750 (Version 1)
Quarter: 2024Q2

REPORT INFORMATION
  Report Type: Other
  Country: CN (occurrence: CN)
  Receive Date: 20240530
  Receipt Date: 20240530
  Transmission Date: 20240715
  Serious: Yes (Other)
  Sender: FDA-Public Use
  Company Number: CN-QILU PHARMACEUTICAL CO.LTD.-QLU-000054-2024

PATIENT
  Age: 23 Year
  Sex: Male
  Weight: 50 kg

DRUGS (1)
  1. TENOFOVIR DISOPROXIL FUMARATE [Suspect]
     Active Substance: TENOFOVIR DISOPROXIL FUMARATE
     Indication: Hepatitis B
     Dosage: 0.3 G PER DAY
     Route: 048
     Dates: start: 20200501, end: 20240522

REACTIONS (1)
  - Sudden hearing loss [Recovering/Resolving]

NARRATIVE: CASE EVENT DATE: 20240510
